FAERS Safety Report 25459662 (Version 3)
Quarter: 2025Q3

REPORT INFORMATION
  Report Type: Report from Study
  Country: US (occurrence: US)
  Receive Date: 20250620
  Receipt Date: 20250718
  Transmission Date: 20251021
  Serious: No
  Sender: ASTELLAS
  Company Number: US-ASTELLAS-2025-AER-031513

PATIENT
  Age: 57 Year
  Sex: Female

DRUGS (2)
  1. FEZOLINETANT [Suspect]
     Active Substance: FEZOLINETANT
     Indication: Menopausal symptoms
     Dosage: EVERY MORNING (QAM)
     Route: 065
     Dates: start: 20250123
  2. ESTRADIOL [Concomitant]
     Active Substance: ESTRADIOL
     Indication: Dyspareunia
     Route: 065
     Dates: start: 20250406

REACTIONS (1)
  - Liver function test increased [Not Recovered/Not Resolved]

NARRATIVE: CASE EVENT DATE: 20250423
